FAERS Safety Report 4820238-9 (Version None)
Quarter: 2005Q4

REPORT INFORMATION
  Report Type: 
  Country: None (occurrence: None)
  Receive Date: 20051104
  Receipt Date: 20051024
  Transmission Date: 20060501
  Serious: Yes (Disabling)
  Sender: FDA-Public Use
  Company Number: 2005UW16137

PATIENT
  Sex: Female

DRUGS (2)
  1. NEXIUM [Suspect]
     Indication: ULCER
     Route: 048
     Dates: start: 20050801, end: 20051017
  2. NEXIUM [Suspect]
     Indication: COLITIS
     Route: 048
     Dates: start: 20050801, end: 20051017

REACTIONS (2)
  - ARTHRALGIA [None]
  - WALKING DISABILITY [None]
